FAERS Safety Report 10447612 (Version 2)
Quarter: 2015Q1

REPORT INFORMATION
  Report Type: Spontaneous
  Country: US (occurrence: US)
  Receive Date: 20140911
  Receipt Date: 20150122
  Transmission Date: 20150720
  Serious: Yes (Death, Other)
  Sender: FDA-Public Use
  Company Number: US-MERCK-1409USA004442

PATIENT
  Sex: Male
  Weight: 92.52 kg

DRUGS (1)
  1. JANUVIA [Suspect]
     Active Substance: SITAGLIPTIN PHOSPHATE
     Indication: TYPE 2 DIABETES MELLITUS
     Dosage: 100 MG, QD
     Route: 048
     Dates: start: 20121226, end: 201305

REACTIONS (14)
  - Pancreatic carcinoma metastatic [Fatal]
  - Disease complication [Fatal]
  - Depression [Unknown]
  - Gout [Unknown]
  - Renal atrophy [Unknown]
  - Fall [Unknown]
  - Cerebral ischaemia [Not Recovered/Not Resolved]
  - Prostatomegaly [Unknown]
  - Dyspepsia [Not Recovered/Not Resolved]
  - Anaemia [Unknown]
  - Arthritis [Unknown]
  - Metastases to peritoneum [Unknown]
  - Arachnoid cyst [Unknown]
  - Renal disorder [Unknown]

NARRATIVE: CASE EVENT DATE: 2012
